FAERS Safety Report 5425435-X (Version None)
Quarter: 2007Q3

REPORT INFORMATION
  Report Type: 
  Country: None (occurrence: None)
  Receive Date: 20070824
  Receipt Date: 20070815
  Transmission Date: 20080115
  Serious: Yes (Hospitalization, Other)
  Sender: FDA-Public Use
  Company Number: US-PFIZER INC-2007044307

PATIENT
  Sex: Male

DRUGS (2)
  1. CELEBREX [Suspect]
  2. ASPIRIN [Concomitant]

REACTIONS (1)
  - CARDIOVASCULAR DISORDER [None]
